FAERS Safety Report 6470583-9 (Version None)
Quarter: 2009Q4

REPORT INFORMATION
  Report Type: 
  Country: None (occurrence: None)
  Receive Date: 20091203
  Receipt Date: 20090910
  Transmission Date: 20100525
  Serious: No
  Sender: FDA-Public Use
  Company Number: US-ABBOTT-09P-163-0597227-00

PATIENT
  Sex: Female
  Weight: 113.5 kg

DRUGS (10)
  1. MERIDIA [Suspect]
     Indication: WEIGHT DECREASED
     Dates: start: 20070101, end: 20090908
  2. UNKNOWN BIRTH CONTROL PILLS [Suspect]
     Indication: CONTRACEPTION
     Dates: start: 20080101, end: 20090101
  3. TRI-SPRINTECH [Suspect]
     Indication: CONTRACEPTION
     Dates: start: 20080101, end: 20090101
  4. XANAX [Concomitant]
     Indication: ANXIETY
  5. SYNTHROID [Concomitant]
     Indication: HYPOTHYROIDISM
  6. ZOCOR [Concomitant]
     Indication: BLOOD CHOLESTEROL INCREASED
  7. LASIX [Concomitant]
     Indication: HYPERTENSION
  8. KLONOPIN [Concomitant]
     Indication: ANXIETY
  9. TEGRETOL [Concomitant]
     Indication: DRUG USE FOR UNKNOWN INDICATION
  10. TOPAMAX [Concomitant]
     Indication: DRUG USE FOR UNKNOWN INDICATION

REACTIONS (1)
  - WEIGHT INCREASED [None]
